FAERS Safety Report 8372551-9 (Version None)
Quarter: 2012Q2

REPORT INFORMATION
  Report Type: 
  Country: None (occurrence: None)
  Receive Date: 20120521
  Receipt Date: 20120515
  Transmission Date: 20120825
  Serious: Yes (Hospitalization)
  Sender: FDA-Public Use
  Company Number: PHHY2012AR042009

PATIENT
  Sex: Female

DRUGS (1)
  1. EXFORGE [Suspect]
     Indication: HYPERTENSION
     Dosage: 160/10 MG, DAILY
     Dates: start: 20080101

REACTIONS (6)
  - NASAL CONGESTION [None]
  - RETCHING [None]
  - RHINITIS ALLERGIC [None]
  - DYSSTASIA [None]
  - HERNIAL EVENTRATION [None]
  - DIZZINESS [None]
